FAERS Safety Report 19823088 (Version 2)
Quarter: 2021Q4

REPORT INFORMATION
  Report Type: Spontaneous
  Country: JP (occurrence: JP)
  Receive Date: 20210913
  Receipt Date: 20211021
  Transmission Date: 20220303
  Serious: Yes (Other)
  Sender: FDA-Public Use
  Company Number: JP-TAIHO-TT210312_P_1

PATIENT
  Age: 67 Year
  Sex: Male
  Weight: 56 kg

DRUGS (3)
  1. LONSURF [Suspect]
     Active Substance: TIPIRACIL HYDROCHLORIDE\TRIFLURIDINE
     Indication: Colon cancer
     Dosage: ON DAYS 1-5 AND 8-10
     Route: 048
     Dates: start: 20210728, end: 20210806
  2. SODIUM GUALENATE MONOHYDRATE [Concomitant]
     Active Substance: SODIUM GUALENATE MONOHYDRATE
     Dosage: DETAILS NOT REPORTED
     Route: 049
  3. DEXAMETHASONE [Concomitant]
     Active Substance: DEXAMETHASONE
     Dosage: DETAILS NOT REPORTED
     Route: 061

REACTIONS (2)
  - Drug eruption [Recovering/Resolving]
  - Hepatic function abnormal [Unknown]

NARRATIVE: CASE EVENT DATE: 20210807
